FAERS Safety Report 10411676 (Version 1)
Quarter: 2014Q3

REPORT INFORMATION
  Report Type: Report from Study
  Country: ZA (occurrence: ZA)
  Receive Date: 20140827
  Receipt Date: 20140827
  Transmission Date: 20150326
  Serious: Yes (Hospitalization, Other)
  Sender: FDA-Public Use
  Company Number: ZA-BAYER-2014-083819

PATIENT
  Sex: Male

DRUGS (1)
  1. BETAFERON [Suspect]
     Active Substance: INTERFERON BETA-1B

REACTIONS (12)
  - Fatigue [None]
  - Asthenia [None]
  - Subcutaneous abscess [None]
  - Multiple sclerosis relapse [Recovering/Resolving]
  - Emotional disorder [None]
  - Stress [None]
  - Multiple sclerosis [None]
  - Haematuria [None]
  - Multiple sclerosis relapse [None]
  - Influenza [None]
  - Influenza [None]
  - Urinary tract infection [None]

NARRATIVE: CASE EVENT DATE: 2007
